FAERS Safety Report 10089049 (Version 1)
Quarter: 2014Q2

REPORT INFORMATION
  Report Type: Spontaneous
  Country: US (occurrence: None)
  Receive Date: 20140418
  Receipt Date: 20140418
  Transmission Date: 20141212
  Serious: Yes (Other)
  Sender: FDA-Public Use
  Company Number: None

PATIENT
  Age: 12 Year
  Sex: Female
  Weight: 58 kg

DRUGS (2)
  1. DIVALPROEX [Suspect]
     Indication: CONVULSION
     Route: 048
     Dates: end: 20120228
  2. DEPAKOTE SPRINKLES [Concomitant]

REACTIONS (2)
  - Convulsion [None]
  - Enuresis [None]
